FAERS Safety Report 6114731-9 (Version None)
Quarter: 2009Q1

REPORT INFORMATION
  Report Type: 
  Country: None (occurrence: None)
  Receive Date: 20090313
  Receipt Date: 20090306
  Transmission Date: 20090719
  Serious: Yes (Other)
  Sender: FDA-Public Use
  Company Number: PHHY2009JP07129

PATIENT
  Age: 28 Year
  Sex: Female

DRUGS (2)
  1. CYCLOSPORINE [Suspect]
     Indication: BEHCET'S SYNDROME
     Dosage: UNK
     Dates: end: 20070301
  2. PREDNISOLONE [Concomitant]
     Indication: BEHCET'S SYNDROME
     Dosage: 30 MG DAILY
     Route: 048

REACTIONS (2)
  - RENAL IMPAIRMENT [None]
  - UVEITIS [None]
